FAERS Safety Report 8480786-X (Version None)
Quarter: 2012Q2

REPORT INFORMATION
  Report Type: 
  Country: None (occurrence: None)
  Receive Date: 20120626
  Receipt Date: 20120626
  Transmission Date: 20120825
  Serious: Yes (Other)
  Sender: FDA-Public Use
  Company Number: None

PATIENT
  Sex: Male

DRUGS (1)
  1. BRILINTA [Suspect]
     Indication: DRUG THERAPY
     Dosage: 2 TABLETS ONLY 1 DOSE
     Dates: start: 20120623, end: 20120623

REACTIONS (4)
  - DIZZINESS [None]
  - RESTLESSNESS [None]
  - RASH PRURITIC [None]
  - MALAISE [None]
